FAERS Safety Report 20549714 (Version 10)
Quarter: 2023Q2

REPORT INFORMATION
  Report Type: Report from Study
  Country: KR (occurrence: KR)
  Receive Date: 20220304
  Receipt Date: 20230505
  Transmission Date: 20230722
  Serious: Yes (Hospitalization)
  Sender: FDA-Public Use
  Company Number: KR-ABBVIE-21K-090-3958578-00

PATIENT
  Age: 45 Year
  Sex: Female
  Weight: 59 kg

DRUGS (28)
  1. SKYRIZI [Suspect]
     Active Substance: RISANKIZUMAB-RZAA
     Indication: Psoriasis
     Dosage: ONSET OF HOSPITALIZATION---2021
     Route: 058
     Dates: start: 20210210, end: 20210210
  2. SKYRIZI [Suspect]
     Active Substance: RISANKIZUMAB-RZAA
     Route: 058
     Dates: start: 20210318, end: 20210318
  3. SKYRIZI [Suspect]
     Active Substance: RISANKIZUMAB-RZAA
     Route: 058
     Dates: start: 20210610, end: 20210610
  4. SKYRIZI [Suspect]
     Active Substance: RISANKIZUMAB-RZAA
     Route: 058
     Dates: start: 20210909, end: 20210909
  5. SKYRIZI [Suspect]
     Active Substance: RISANKIZUMAB-RZAA
     Route: 058
     Dates: start: 20211202, end: 20211202
  6. SKYRIZI [Suspect]
     Active Substance: RISANKIZUMAB-RZAA
     Dosage: ONCE
     Route: 058
     Dates: start: 20220303, end: 20220303
  7. OROCIN TAB 100mg [Concomitant]
     Indication: Antibiotic prophylaxis
     Dosage: TIME INTERVAL: 0.33333333 DAYS
     Route: 048
     Dates: start: 20220225
  8. SAMA LIDOMEX CREAM 20g [Concomitant]
     Indication: Psoriasis
     Dosage: UNIT DOSE : UNKNOWN
     Route: 061
     Dates: start: 20201208, end: 20210320
  9. ENSTILUM FOAM [Concomitant]
     Indication: Psoriasis
     Dosage: UNIT DOSE : UNKNOWN
     Route: 061
     Dates: start: 20200615, end: 20210320
  10. OMEX [Concomitant]
     Indication: Psoriasis
     Dosage: CREAM 20G, PRN
     Route: 061
     Dates: start: 20201208, end: 20210320
  11. XAMIOL GEL (Applicator) [Concomitant]
     Indication: Psoriasis
     Dosage: UNIT DOSE : UNKNOWN
     Route: 061
     Dates: start: 20201103, end: 20210320
  12. DETHASONE OINT 0 .25% 30g [Concomitant]
     Indication: Psoriasis
     Dosage: UNIT DOSE : UNKNOWN
     Route: 061
     Dates: start: 2018
  13. VITAMIN C [Concomitant]
     Active Substance: ASCORBIC ACID
     Indication: Nutritional supplementation
     Route: 048
     Dates: start: 20210129, end: 20211130
  14. VASCAM INJ 3mg/3ml [Concomitant]
     Indication: Surgery
     Route: 042
     Dates: start: 20220225, end: 20220225
  15. ITOMED [Concomitant]
     Indication: Prophylaxis
     Route: 048
     Dates: start: 20210427, end: 20210503
  16. XYZAL TAB 5mg [Concomitant]
     Indication: Psoriasis
     Route: 048
     Dates: start: 20201103, end: 20210320
  17. VITAMIN C KOREA EUNDAN TAB [Concomitant]
     Indication: Nutritional supplementation
     Route: 048
     Dates: start: 20210129, end: 20211130
  18. FENTANYL CITRATE DAEWON INJ 10mL [Concomitant]
     Indication: Product used for unknown indication
     Route: 042
     Dates: start: 20220225, end: 20220225
  19. CEFAZOLINE YUHAN INJ 1g [Concomitant]
     Indication: Uterine leiomyoma
     Route: 042
     Dates: start: 20220225, end: 20220225
  20. ITOMED TAB [Concomitant]
     Indication: Prophylaxis
     Route: 048
     Dates: start: 20210427, end: 20210503
  21. LOXOPRIN TAB [Concomitant]
     Indication: Antibiotic prophylaxis
     Dosage: TIME INTERVAL: 0.33333333 DAYS
     Route: 048
     Dates: start: 20220225
  22. REBAT TAB [Concomitant]
     Indication: Prophylaxis
     Route: 048
     Dates: start: 20210427, end: 20210503
  23. TOZINAMERAN [Concomitant]
     Active Substance: TOZINAMERAN
     Indication: COVID-19 immunisation
     Route: 030
     Dates: start: 20210918, end: 20210918
  24. TOZINAMERAN [Concomitant]
     Active Substance: TOZINAMERAN
     Indication: COVID-19 immunisation
     Route: 030
     Dates: start: 20211026, end: 20211026
  25. HUMOSA TAB [Concomitant]
     Indication: Antibiotic prophylaxis
     Dosage: TIME INTERVAL: 0.33333333 DAYS
     Route: 048
     Dates: start: 20220225
  26. METHOTREXATE [Concomitant]
     Active Substance: METHOTREXATE
     Indication: Psoriasis
     Dates: start: 20201103, end: 20210209
  27. ACETAPHEN INJ [Concomitant]
     Indication: Uterine leiomyoma
     Route: 042
     Dates: start: 20220225, end: 20220225
  28. CYCLOSPORINE [Concomitant]
     Active Substance: CYCLOSPORINE
     Indication: Psoriasis
     Dates: start: 20200616, end: 20201102

REACTIONS (3)
  - Uterine leiomyoma [Recovered/Resolved]
  - Ligament sprain [Recovered/Resolved]
  - Dermatitis contact [Recovered/Resolved]

NARRATIVE: CASE EVENT DATE: 20210427
